FAERS Safety Report 9008022 (Version 1)
Quarter: 2012Q4

REPORT INFORMATION
  Report Type: Spontaneous
  Country: GR (occurrence: None)
  Receive Date: 20121227
  Receipt Date: 20121227
  Transmission Date: 20130627
  Serious: Yes (Death, Hospitalization)
  Sender: FDA-Public Use
  Company Number: ACO_33463_2012

PATIENT
  Age: 60 Year
  Sex: Female

DRUGS (3)
  1. FAMPYRA [Suspect]
     Indication: MULTIPLE SCLEROSIS
     Route: 030
  2. CORTISONE (CORTISONE) [Concomitant]
  3. AZATHIOPRINE (AZATHIOPRINE) [Concomitant]

REACTIONS (2)
  - Sepsis [None]
  - Urinary tract infection [None]
